FAERS Safety Report 19899876 (Version 1)
Quarter: 2021Q3

REPORT INFORMATION
  Report Type: Report from Study
  Country: JP (occurrence: JP)
  Receive Date: 20210930
  Receipt Date: 20210930
  Transmission Date: 20211014
  Serious: Yes (Other)
  Sender: FDA-Public Use
  Company Number: JP-VIIV HEALTHCARE LIMITED-JP2018JPN193540

PATIENT
  Age: 30 Year
  Sex: Male

DRUGS (10)
  1. TALION (JAPAN) [Concomitant]
     Active Substance: BEPOTASTINE BESYLATE
     Dosage: UNK
     Dates: start: 20180317, end: 201805
  2. DOLUTEGRAVIR [Suspect]
     Active Substance: DOLUTEGRAVIR
     Indication: HIV INFECTION
     Dosage: 1 DF, 1D
     Route: 048
     Dates: start: 20170826
  3. CELESTAMINE [Concomitant]
     Active Substance: BETAMETHASONE\DEXCHLORPHENIRAMINE MALEATE
     Dosage: UNK
     Dates: start: 20180317, end: 201805
  4. BILANOA [Concomitant]
     Active Substance: BILASTINE
     Indication: SEASONAL ALLERGY
     Dosage: UNK
     Dates: start: 20190228, end: 20190428
  5. KETOCONAZOLE. [Concomitant]
     Active Substance: KETOCONAZOLE
     Indication: SEBORRHOEIC DERMATITIS
     Dosage: UNK
     Dates: start: 20170826, end: 201709
  6. DESCOVY [Suspect]
     Active Substance: EMTRICITABINE\TENOFOVIR ALAFENAMIDE FUMARATE
     Indication: HIV INFECTION
     Dosage: 1 DF, 1D
     Route: 048
     Dates: start: 20170826
  7. BACTAR [Suspect]
     Active Substance: SULFAMERAZINE\TRIMETHOPRIM
     Indication: ANTIFUNGAL PROPHYLAXIS
     Dosage: UNK
     Route: 048
     Dates: start: 20170826, end: 20180808
  8. RINDERON [Concomitant]
     Indication: SEBORRHOEIC DERMATITIS
     Dosage: UNK
     Dates: start: 20170826, end: 201709
  9. PATANOL OPHTHALMIC [Concomitant]
     Dosage: UNK
     Dates: start: 20180317, end: 201805
  10. ALESION OPHTHALMIC SOLUTION 0.05% [Concomitant]
     Indication: SEASONAL ALLERGY
     Dosage: UNK
     Dates: start: 20190228, end: 20190428

REACTIONS (15)
  - Syphilis [Recovering/Resolving]
  - Folliculitis [Recovering/Resolving]
  - Herpes virus infection [Recovering/Resolving]
  - Seasonal allergy [Recovering/Resolving]
  - Weight increased [Not Recovered/Not Resolved]
  - Oral herpes [Recovering/Resolving]
  - Solar dermatitis [Recovering/Resolving]
  - Tinea pedis [Recovering/Resolving]
  - Palmoplantar keratoderma [Recovering/Resolving]
  - Beta 2 microglobulin urine increased [Recovered/Resolved]
  - Stomatitis [Recovering/Resolving]
  - Blood creatine phosphokinase increased [Recovered/Resolved]
  - Liver disorder [Recovering/Resolving]
  - Genital candidiasis [Recovering/Resolving]
  - Liver disorder [Recovered/Resolved]

NARRATIVE: CASE EVENT DATE: 20170909
